FAERS Safety Report 10065426 (Version 2)
Quarter: 2014Q2

REPORT INFORMATION
  Report Type: Report from Study
  Country: US (occurrence: US)
  Receive Date: 20140408
  Receipt Date: 20140523
  Transmission Date: 20141212
  Serious: Yes (Hospitalization)
  Sender: FDA-Public Use
  Company Number: US-GLAXOSMITHKLINE-Z0022144A

PATIENT
  Age: 45 Year
  Sex: Female
  Weight: 68.7 kg

DRUGS (3)
  1. DABRAFENIB [Suspect]
     Indication: MALIGNANT MELANOMA
     Dosage: 100MG TWICE PER DAY
     Route: 048
     Dates: start: 20131216
  2. TRAMETINIB [Suspect]
     Indication: MALIGNANT MELANOMA
     Dosage: 1MG PER DAY
     Route: 048
     Dates: start: 20131216
  3. IPILIMUMAB [Suspect]
     Indication: MALIGNANT MELANOMA
     Dosage: 3MGK EVERY 3 WEEKS
     Route: 042
     Dates: start: 20131230, end: 20140121

REACTIONS (2)
  - Colitis [Recovered/Resolved]
  - Intestinal perforation [Recovered/Resolved]
